FAERS Safety Report 13992949 (Version 1)
Quarter: 2017Q3

REPORT INFORMATION
  Report Type: Spontaneous
  Country: GB (occurrence: GB)
  Receive Date: 20170920
  Receipt Date: 20170920
  Transmission Date: 20171128
  Serious: Yes (Other)
  Sender: FDA-Public Use
  Company Number: GB-JNJFOC-20170911887

PATIENT
  Age: 74 Year
  Sex: Male

DRUGS (3)
  1. IBRUTINIB [Suspect]
     Active Substance: IBRUTINIB
     Indication: CHRONIC LYMPHOCYTIC LEUKAEMIA
     Route: 048
  2. IBRUTINIB [Suspect]
     Active Substance: IBRUTINIB
     Indication: CHRONIC LYMPHOCYTIC LEUKAEMIA
     Route: 048
  3. IBRUTINIB [Suspect]
     Active Substance: IBRUTINIB
     Indication: CHRONIC LYMPHOCYTIC LEUKAEMIA
     Route: 048

REACTIONS (6)
  - Deep vein thrombosis [Unknown]
  - Lymphocyte count increased [Unknown]
  - Respiratory tract infection fungal [Unknown]
  - Arthralgia [Unknown]
  - Diarrhoea [Unknown]
  - Productive cough [Unknown]
